FAERS Safety Report 18872892 (Version 1)
Quarter: 2021Q1

REPORT INFORMATION
  Report Type: Spontaneous
  Country: DE (occurrence: DE)
  Receive Date: 20210210
  Receipt Date: 20210210
  Transmission Date: 20210420
  Serious: Yes (Hospitalization, Other)
  Sender: FDA-Public Use
  Company Number: DE-BAYER-2021-054165

PATIENT
  Age: 46 Year
  Sex: Female
  Weight: 50 kg

DRUGS (13)
  1. PANTOPRAZOLE [Concomitant]
     Active Substance: PANTOPRAZOLE
     Dosage: ONLY TAKEN DURING THE COURSE OF CIPROFLOXACIN
  2. CIPROBAY 500 MG [Suspect]
     Active Substance: CIPROFLOXACIN
     Dosage: 500 MG, BID
     Route: 048
     Dates: start: 20191213, end: 20191223
  3. SPASCUPREEL [ACONITUM NAPELLUS;AMANITA MUSCARIA;AMMONIUM BROMIDE;A [Concomitant]
     Indication: DETOXIFICATION
     Dosage: SINGLE DOSE
     Route: 042
     Dates: start: 20200111, end: 20200111
  4. HOMEOPATHICS NOS [Concomitant]
     Active Substance: HOMEOPATHICS
     Indication: DETOXIFICATION
     Dosage: SINGLE DOSE
     Route: 042
     Dates: start: 20200111, end: 20200111
  5. DYSTO LOGES N [Concomitant]
     Indication: DETOXIFICATION
     Dosage: SINGLE DOSE
     Route: 042
     Dates: start: 20200111, end: 20200111
  6. PASCORBIN [Concomitant]
     Active Substance: ASCORBIC ACID
     Indication: DETOXIFICATION
     Dosage: SINGLE DOSE
     Route: 042
     Dates: start: 20200111, end: 20200111
  7. PROHANCE [Suspect]
     Active Substance: GADOTERIDOL
     Indication: SCAN WITH CONTRAST
     Dosage: SINGLE DOSE 0,5 MMOL/ML
     Route: 042
     Dates: start: 20200118, end: 20200118
  8. GASTRI LOGES [Concomitant]
     Indication: DETOXIFICATION
     Dosage: SINGLE DOSE
     Route: 042
     Dates: start: 20200111, end: 20200111
  9. GASTROLUX (DIATRIZOATE MEGLUMINE\DIATRIZOATE SODIUM) [Suspect]
     Active Substance: DIATRIZOATE MEGLUMINE\DIATRIZOATE SODIUM
     Indication: SCAN WITH CONTRAST
     Dosage: 390MG/ML LYSINE AMIDOTRIZOATE
     Route: 048
     Dates: start: 20200624, end: 20200624
  10. VITAMIN B12 FORTE HEVERT [Concomitant]
     Indication: NEUROPATHY PERIPHERAL
     Dosage: SINGLE DOSE
     Route: 042
     Dates: start: 20200111, end: 20200111
  11. FOLIC ACID. [Concomitant]
     Active Substance: FOLIC ACID
     Indication: NEUROPATHY PERIPHERAL
     Dosage: SINGLE DOSE, EXACT DOSE UNKNOWN
     Route: 042
     Dates: start: 20200111, end: 20200111
  12. GASTROLUX (DIATRIZOATE MEGLUMINE\DIATRIZOATE SODIUM) [Suspect]
     Active Substance: DIATRIZOATE MEGLUMINE\DIATRIZOATE SODIUM
     Indication: SCAN WITH CONTRAST
     Dosage: 370MG/ML SODIUM AMIDOTRIZOATE
     Route: 048
     Dates: start: 20200624, end: 20200624
  13. VITAMIN B12 FORTE HEVERT [Concomitant]
     Indication: NEUROPATHY PERIPHERAL
     Dosage: 3000 ?G

REACTIONS (27)
  - Dizziness [Not Recovered/Not Resolved]
  - Muscle twitching [Not Recovered/Not Resolved]
  - Hypoaesthesia [Not Recovered/Not Resolved]
  - Dry mouth [Not Recovered/Not Resolved]
  - Insomnia [Not Recovered/Not Resolved]
  - Hypoaesthesia [Not Recovered/Not Resolved]
  - Dysphagia [Not Recovered/Not Resolved]
  - Feeling cold [Not Recovered/Not Resolved]
  - Pain in extremity [Not Recovered/Not Resolved]
  - Rash [Recovered/Resolved]
  - Hyperaesthesia [Not Recovered/Not Resolved]
  - Dry mouth [Not Recovered/Not Resolved]
  - Disturbance in attention [Not Recovered/Not Resolved]
  - Somnolence [Not Recovered/Not Resolved]
  - Diarrhoea [Recovered/Resolved]
  - Neck pain [Recovered/Resolved]
  - Arthralgia [Not Recovered/Not Resolved]
  - Myalgia [Not Recovered/Not Resolved]
  - Tachycardia [Not Recovered/Not Resolved]
  - Myalgia [Not Recovered/Not Resolved]
  - Ageusia [Not Recovered/Not Resolved]
  - Liver function test increased [Recovered/Resolved]
  - Oropharyngeal pain [Not Recovered/Not Resolved]
  - Hypoaesthesia oral [Not Recovered/Not Resolved]
  - Hypoaesthesia [Not Recovered/Not Resolved]
  - Dizziness [Recovered/Resolved]
  - Paraesthesia [Not Recovered/Not Resolved]

NARRATIVE: CASE EVENT DATE: 20191231
